FAERS Safety Report 16615713 (Version 1)
Quarter: 2019Q3

REPORT INFORMATION
  Report Type: Spontaneous
  Country: US (occurrence: US)
  Receive Date: 20190723
  Receipt Date: 20190723
  Transmission Date: 20191004
  Serious: No
  Sender: FDA-Public Use
  Company Number: US-ABBVIE-19P-163-2780596-00

PATIENT
  Age: 30 Year
  Sex: Female

DRUGS (2)
  1. ORILISSA [Suspect]
     Active Substance: ELAGOLIX SODIUM
     Indication: ENDOMETRIOSIS
     Route: 048
     Dates: start: 20190403, end: 20190430
  2. DEPO-PROVERA [Suspect]
     Active Substance: MEDROXYPROGESTERONE ACETATE
     Indication: ENDOMETRIOSIS
     Route: 065
     Dates: start: 20190115

REACTIONS (1)
  - Depression [Recovering/Resolving]

NARRATIVE: CASE EVENT DATE: 201904
